FAERS Safety Report 7376713-9 (Version None)
Quarter: 2011Q1

REPORT INFORMATION
  Report Type: 
  Country: None (occurrence: None)
  Receive Date: 20110325
  Receipt Date: 20100831
  Transmission Date: 20110831
  Serious: No
  Sender: FDA-Public Use
  Company Number: US-BAYER-2011-026169

PATIENT
  Sex: Male
  Weight: 77 kg

DRUGS (2)
  1. ALEVE [Suspect]
     Indication: NECK PAIN
     Dosage: 440 MG, QD, BOTTLE COUNT 20S
     Route: 048
     Dates: start: 20100826, end: 20100827
  2. ALEVE [Suspect]
     Dosage: 440 MG, QD, BOTTLE COUNT 20S
     Route: 048
     Dates: start: 20100831

REACTIONS (1)
  - NECK PAIN [None]
